FAERS Safety Report 9681064 (Version 1)
Quarter: 2013Q4

REPORT INFORMATION
  Report Type: Spontaneous
  Country: CO (occurrence: CO)
  Receive Date: 20131111
  Receipt Date: 20131111
  Transmission Date: 20140711
  Serious: Yes (Other)
  Sender: FDA-Public Use
  Company Number: CO-VERTEX PHARMACEUTICALS INC-2013-010969

PATIENT
  Age: 52 Year
  Sex: Female
  Weight: 55 kg

DRUGS (3)
  1. INCIVO [Suspect]
     Indication: HEPATITIS C
     Dosage: 1125 MG, BID
     Route: 048
     Dates: start: 20130823
  2. RIBAVIRIN [Concomitant]
     Indication: HEPATITIS C
     Dosage: 200 MG, BID
     Route: 048
     Dates: start: 20130823
  3. INTERFERON [Concomitant]
     Indication: HEPATITIS C
     Dosage: 180 ?G, Q8DAYS
     Route: 058
     Dates: start: 20130823

REACTIONS (2)
  - Dysuria [Recovered/Resolved]
  - Pain [Recovered/Resolved]
